FAERS Safety Report 24251612 (Version 2)
Quarter: 2024Q3

REPORT INFORMATION
  Report Type: Report from Study
  Country: CN (occurrence: CN)
  Receive Date: 20240827
  Receipt Date: 20240913
  Transmission Date: 20241017
  Serious: Yes (Hospitalization)
  Sender: NOVO NORDISK
  Company Number: CN-NOVOPROD-1271059

PATIENT
  Sex: Male
  Weight: 64 kg

DRUGS (3)
  1. NOVOEIGHT [Suspect]
     Active Substance: ANTIHEMOPHILIC FACTOR, HUMAN RECOMBINANT
     Dosage: 2000 IU, Q12H
     Route: 042
     Dates: start: 20240904
  2. NOVOEIGHT [Suspect]
     Active Substance: ANTIHEMOPHILIC FACTOR, HUMAN RECOMBINANT
     Dosage: 2000 IU, Q/2H
     Route: 042
     Dates: start: 20240722
  3. NOVOEIGHT [Suspect]
     Active Substance: ANTIHEMOPHILIC FACTOR, HUMAN RECOMBINANT
     Indication: Factor VIII deficiency
     Dosage: 1000 IU, TWO TO THREE DOSES PER WEEK
     Route: 042
     Dates: start: 202401

REACTIONS (2)
  - Haemarthrosis [Recovering/Resolving]
  - Mouth haemorrhage [Recovering/Resolving]
